FAERS Safety Report 4541024-3 (Version None)
Quarter: 2004Q4

REPORT INFORMATION
  Report Type: 
  Country: None (occurrence: None)
  Receive Date: 20041228
  Receipt Date: 20041214
  Transmission Date: 20050328
  Serious: Yes (Disabling)
  Sender: FDA-Public Use
  Company Number: B0361804A

PATIENT
  Age: 34 Year
  Sex: Female

DRUGS (4)
  1. EPIVIR [Suspect]
     Indication: HIV INFECTION
     Dosage: 300 MG / PER DAY
  2. STAVUDINE (FORMULATION UNKNOWN) (STAVUDINE) [Suspect]
     Indication: HIV INFECTION
     Dosage: 80 MG / PER DAY
  3. NELFINAVIR MESYLATE (FORMULATION UNKNOWN) (NELFINAVIR MESYLATE) [Suspect]
     Indication: HIV INFECTION
     Dosage: 2250 MG/ PER DAY
  4. COTRIM [Concomitant]

REACTIONS (1)
  - OSTEONECROSIS [None]
